FAERS Safety Report 15948272 (Version 1)
Quarter: 2019Q1

REPORT INFORMATION
  Report Type: Spontaneous
  Country: US (occurrence: US)
  Receive Date: 20190121
  Receipt Date: 20190121
  Transmission Date: 20190417
  Serious: No
  Sender: FDA-Public Use
  Company Number: None

PATIENT
  Age: 60 Year
  Sex: Female

DRUGS (3)
  1. LETROZOLE. [Concomitant]
     Active Substance: LETROZOLE
  2. CIONAZEPAM [Concomitant]
     Active Substance: CLONAZEPAM
  3. IBRANCE [Suspect]
     Active Substance: PALBOCICLIB
     Route: 048
     Dates: start: 20190111

REACTIONS (3)
  - Dry eye [None]
  - Pruritus [None]
  - Dry skin [None]

NARRATIVE: CASE EVENT DATE: 20190119
